FAERS Safety Report 9642442 (Version 1)
Quarter: 2013Q4

REPORT INFORMATION
  Report Type: Spontaneous
  Country: CA (occurrence: CA)
  Receive Date: 20131024
  Receipt Date: 20131024
  Transmission Date: 20140711
  Serious: Yes (Life-Threatening, Hospitalization)
  Sender: FDA-Public Use
  Company Number: CA-ROCHE-1292801

PATIENT
  Age: 14 Year
  Sex: Male
  Weight: 121 kg

DRUGS (6)
  1. VESANOID [Suspect]
     Indication: PRODUCT USED FOR UNKNOWN INDICATION
     Dosage: THERAPY DURATION: 24.0 DAYS
     Route: 048
  2. ABELCET [Concomitant]
     Route: 042
  3. ACYCLOVIR [Concomitant]
     Route: 042
  4. CEFTAZIDIME [Concomitant]
     Route: 042
  5. METRONIDAZOLE [Concomitant]
     Route: 042
  6. VANCOMYCIN HYDROCHLORIDE [Concomitant]
     Route: 042

REACTIONS (1)
  - Pharyngeal inflammation [Recovered/Resolved]
